FAERS Safety Report 15788156 (Version 7)
Quarter: 2020Q3

REPORT INFORMATION
  Report Type: Report from Study
  Country: None (occurrence: US)
  Receive Date: 20190104
  Receipt Date: 20200713
  Transmission Date: 20201102
  Serious: Yes (Hospitalization, Other)
  Sender: FDA-Public Use
  Company Number: US-ABBVIE-19K-163-2612069-00

PATIENT
  Age: 57 Year
  Sex: Female
  Weight: 95.34 kg

DRUGS (4)
  1. PANTOPRAZOLE [Concomitant]
     Active Substance: PANTOPRAZOLE
     Indication: NAUSEA
  2. CITALOPRAM [Concomitant]
     Active Substance: CITALOPRAM HYDROBROMIDE
     Indication: ANXIETY
  3. HUMIRA [Suspect]
     Active Substance: ADALIMUMAB
     Indication: CROHN^S DISEASE
     Route: 058
     Dates: start: 201811, end: 20181204
  4. HUMIRA [Suspect]
     Active Substance: ADALIMUMAB
     Indication: CROHN^S DISEASE
     Dosage: CITRATE FREE
     Route: 058

REACTIONS (9)
  - Neurological procedural complication [Unknown]
  - Limb reconstructive surgery [Unknown]
  - Neuralgia [Recovered/Resolved]
  - Injection site pain [Unknown]
  - Crohn^s disease [Unknown]
  - Pain [Unknown]
  - Hospitalisation [Unknown]
  - Foot operation [Unknown]
  - Nausea [Unknown]

NARRATIVE: CASE EVENT DATE: 201811
